FAERS Safety Report 16563886 (Version 1)
Quarter: 2019Q3

REPORT INFORMATION
  Report Type: Spontaneous
  Country: ES (occurrence: ES)
  Receive Date: 20190712
  Receipt Date: 20190712
  Transmission Date: 20191004
  Serious: Yes (Other)
  Sender: FDA-Public Use
  Company Number: ES-SUN PHARMACEUTICAL INDUSTRIES LTD-2019RR-213263

PATIENT
  Age: 27 Year
  Sex: Male

DRUGS (2)
  1. VALPROICO ACIDO (3194A) [Suspect]
     Active Substance: VALPROIC ACID
     Indication: STATUS EPILEPTICUS
     Dosage: 1600 MILLIGRAM, DAILY
     Route: 065
     Dates: start: 20190407, end: 20190411
  2. LEVETIRACETAM. [Suspect]
     Active Substance: LEVETIRACETAM
     Indication: PRODUCT USED FOR UNKNOWN INDICATION
     Dosage: 750 MILLIGRAM, BID
     Route: 065
     Dates: start: 20190407, end: 20190418

REACTIONS (5)
  - Coagulopathy [Recovering/Resolving]
  - Hyperammonaemia [Recovered/Resolved]
  - Hepatic function abnormal [Recovering/Resolving]
  - Rhabdomyolysis [Recovering/Resolving]
  - Renal failure [Recovered/Resolved]

NARRATIVE: CASE EVENT DATE: 20190408
